FAERS Safety Report 24235758 (Version 2)
Quarter: 2024Q3

REPORT INFORMATION
  Report Type: Spontaneous
  Country: US (occurrence: US)
  Receive Date: 20240822
  Receipt Date: 20240823
  Transmission Date: 20241017
  Serious: Yes (Other)
  Sender: UCB
  Company Number: US-UCBSA-2024025048

PATIENT
  Age: 23 Year
  Sex: Female

DRUGS (2)
  1. RYSTIGGO [Suspect]
     Active Substance: ROZANOLIXIZUMAB-NOLI
     Indication: Myasthenia gravis
     Dosage: 560 MILLIGRAM, WEEKLY (QW), FOR 6 WEEKS
     Route: 058
     Dates: start: 20240513
  2. EPINEPHRINE [EPINEPHRINE BITARTRATE] [Concomitant]
     Indication: Product used for unknown indication
     Dosage: UNK

REACTIONS (6)
  - Nephrolithiasis [Recovered/Resolved]
  - Injection site discomfort [Unknown]
  - Injection site erythema [Unknown]
  - Dizziness [Unknown]
  - Fatigue [Unknown]
  - Pallor [Unknown]

NARRATIVE: CASE EVENT DATE: 20240501
